FAERS Safety Report 24108369 (Version 1)
Quarter: 2024Q3

REPORT INFORMATION
  Report Type: Spontaneous
  Country: ES (occurrence: ES)
  Receive Date: 20240718
  Receipt Date: 20240718
  Transmission Date: 20241016
  Serious: Yes (Hospitalization)
  Sender: CHEPLAPHARM
  Company Number: None

PATIENT
  Age: 61 Year
  Sex: Female

DRUGS (4)
  1. OLANZAPINE [Suspect]
     Active Substance: OLANZAPINE
     Indication: Bipolar disorder
     Dates: start: 20240124, end: 20240221
  2. CLONAZEPAM [Suspect]
     Active Substance: CLONAZEPAM
     Dates: start: 20240124, end: 20240229
  3. ABILIFY MAINTENA [Suspect]
     Active Substance: ARIPIPRAZOLE
     Indication: Bipolar disorder
     Dosage: POWDER AND SOLVENT FOR PROLONGED-RELEASE SUSPENSION?IN INJECTABLE 1 VIAL + 1 VIAL OF SOLVENT
     Dates: start: 20230727, end: 20240207
  4. VALPROATE SODIUM [Concomitant]
     Active Substance: VALPROATE SODIUM
     Dosage: 20 ?TABLETS

REACTIONS (1)
  - Parkinsonism [Recovered/Resolved]

NARRATIVE: CASE EVENT DATE: 20240219
